FAERS Safety Report 9700639 (Version 2)
Quarter: 2014Q1

REPORT INFORMATION
  Report Type: Spontaneous
  Country: FR (occurrence: FR)
  Receive Date: 20131121
  Receipt Date: 20140224
  Transmission Date: 20141002
  Serious: Yes (Hospitalization)
  Sender: FDA-Public Use
  Company Number: PHHY2013FR131506

PATIENT
  Age: 3 Year
  Sex: Female
  Weight: 15 kg

DRUGS (16)
  1. ILARIS [Suspect]
     Indication: JUVENILE IDIOPATHIC ARTHRITIS
     Dosage: 4 MG/KG, EVERY 4 WEEKS
     Route: 058
     Dates: start: 201210, end: 201307
  2. ILARIS [Suspect]
     Indication: OFF LABEL USE
     Dosage: 8 MG/KG, EVERY 4 WEEKS
     Route: 058
     Dates: start: 20130731, end: 20130926
  3. FLUBENDAZOLE [Suspect]
     Dosage: 1 DF, (1 MEASURING SPOON) QD
     Route: 048
     Dates: start: 20130921
  4. ADVIL//IBUPROFEN [Concomitant]
  5. TRIFLUCAN [Concomitant]
  6. PARACETAMOL [Concomitant]
  7. SOLUPRED//PREDNISOLONE [Concomitant]
     Indication: JUVENILE IDIOPATHIC ARTHRITIS
     Dosage: 10 MG, QD
  8. ZYMA-D2 [Concomitant]
     Dosage: UNK
     Dates: start: 201203
  9. POTASSIUM [Concomitant]
     Dosage: UNK
     Dates: start: 201203
  10. CORTICOSTEROIDS [Concomitant]
     Dosage: 2.5 MG/KG, QD
     Dates: start: 20120524, end: 20120528
  11. CORTICOSTEROIDS [Concomitant]
     Dosage: UNK
     Route: 040
     Dates: start: 20120703, end: 20120703
  12. CORTICOSTEROIDS [Concomitant]
     Dosage: 3 MG/KG, QD
     Dates: start: 20120919
  13. CORTICOSTEROIDS [Concomitant]
     Dosage: 2.5 MG/KG, QD
     Dates: start: 20121005
  14. CORTICOSTEROIDS [Concomitant]
     Dosage: 0.7 MG/KG, QD
     Dates: start: 20130731
  15. CORTICOSTEROIDS [Concomitant]
     Dosage: 0.5 MG/KG, QD
     Dates: start: 20130926
  16. CORTICOSTEROIDS [Concomitant]
     Dosage: 1 MG/KG, QD
     Dates: start: 20131002

REACTIONS (10)
  - Hepatitis [Recovering/Resolving]
  - Asthenia [Recovering/Resolving]
  - Pyrexia [Recovering/Resolving]
  - Transaminases increased [Recovering/Resolving]
  - Blood bilirubin increased [Recovering/Resolving]
  - Anaemia [Recovering/Resolving]
  - Blood fibrinogen decreased [Recovering/Resolving]
  - Thrombocytopenia [Recovering/Resolving]
  - Cell death [Recovered/Resolved]
  - Hand-foot-and-mouth disease [Unknown]
